FAERS Safety Report 13687514 (Version 1)
Quarter: 2017Q2

REPORT INFORMATION
  Report Type: Spontaneous
  Country: US (occurrence: US)
  Receive Date: 20170624
  Receipt Date: 20170624
  Transmission Date: 20170830
  Serious: Yes (Death)
  Sender: FDA-Public Use
  Company Number: US-ROCHE-1954048

PATIENT
  Age: 85 Year
  Sex: Female
  Weight: 49.49 kg

DRUGS (2)
  1. AVASTIN [Suspect]
     Active Substance: BEVACIZUMAB
     Dosage: 400 MG/ 6 ML VL
     Route: 042
     Dates: start: 20161025, end: 20170607
  2. AVASTIN [Suspect]
     Active Substance: BEVACIZUMAB
     Indication: OVARIAN CANCER
     Dosage: 100 MG/ 4 ML VL
     Route: 042
     Dates: start: 20161025, end: 20170607

REACTIONS (1)
  - Death [Fatal]

NARRATIVE: CASE EVENT DATE: 20170607
